FAERS Safety Report 20623319 (Version 1)
Quarter: 2022Q1

REPORT INFORMATION
  Report Type: Spontaneous
  Country: FR (occurrence: FR)
  Receive Date: 20220322
  Receipt Date: 20220322
  Transmission Date: 20220424
  Serious: Yes (Congenital Anomaly, Other)
  Sender: FDA-Public Use
  Company Number: FR-GE Healthcare Medical Diagnostics-N131-PR-1606L-0007

PATIENT

DRUGS (8)
  1. SODIUM IODIDE I-123 [Suspect]
     Active Substance: SODIUM IODIDE I-123
     Indication: Diagnostic procedure
     Dosage: DOSE NOT REPORTED
     Route: 064
  2. SODIUM IODIDE I-123 [Suspect]
     Active Substance: SODIUM IODIDE I-123
     Indication: Product used for unknown indication
  3. SODIUM IODIDE I-131 [Suspect]
     Active Substance: SODIUM IODIDE I-131
     Indication: Diagnostic procedure
     Dosage: DOSE NOT REPORTED
     Route: 064
  4. SODIUM IODIDE I-131 [Suspect]
     Active Substance: SODIUM IODIDE I-131
     Indication: Product used for unknown indication
  5. THALLOUS CHLORIDE TL-201 [Suspect]
     Active Substance: THALLOUS CHLORIDE TL-201
     Indication: Diagnostic procedure
     Dosage: DOSE NOT REPORTED
     Route: 064
  6. THALLOUS CHLORIDE TL-201 [Suspect]
     Active Substance: THALLOUS CHLORIDE TL-201
     Indication: Product used for unknown indication
  7. DRYTEC (TECHNETIUM TC99M GENERATOR) [Suspect]
     Active Substance: TECHNETIUM TC-99M SODIUM PERTECHNETATE
     Indication: Diagnostic procedure
     Dosage: DOSE NOT REPORTED
     Route: 064
  8. DRYTEC (TECHNETIUM TC99M GENERATOR) [Suspect]
     Active Substance: TECHNETIUM TC-99M SODIUM PERTECHNETATE
     Indication: Product used for unknown indication

REACTIONS (3)
  - Foetal malformation [Not Recovered/Not Resolved]
  - Foetal growth restriction [Not Recovered/Not Resolved]
  - Foetal exposure during pregnancy [Not Recovered/Not Resolved]
